FAERS Safety Report 9464648 (Version 13)
Quarter: 2021Q1

REPORT INFORMATION
  Report Type: Spontaneous
  Country: US (occurrence: US)
  Receive Date: 20130819
  Receipt Date: 20210219
  Transmission Date: 20210420
  Serious: No
  Sender: FDA-Public Use
  Company Number: US-PFIZER INC-2013237779

PATIENT
  Age: 64 Year
  Sex: Female

DRUGS (13)
  1. AMLODIPINE BESILATE [Suspect]
     Active Substance: AMLODIPINE BESYLATE
     Dosage: UNK
  2. QUINAPRIL. [Suspect]
     Active Substance: QUINAPRIL
     Dosage: UNK
  3. CODEINE/CODEINE PHOSPHATE/CODEINE SULFATE [Suspect]
     Active Substance: CODEINE
     Dosage: UNK
  4. PRADAXA [Suspect]
     Active Substance: DABIGATRAN ETEXILATE MESYLATE
     Dosage: UNK
  5. XARELTO [Suspect]
     Active Substance: RIVAROXABAN
     Dosage: UNK
  6. DEMEROL [Suspect]
     Active Substance: MEPERIDINE HYDROCHLORIDE
     Dosage: UNK
  7. ISOSORBIDE [ISOSORBIDE DINITRATE] [Suspect]
     Active Substance: ISOSORBIDE DINITRATE
     Dosage: UNK
  8. ACCUPRIL [Suspect]
     Active Substance: QUINAPRIL HYDROCHLORIDE
     Dosage: UNK
  9. MORPHINE SULFATE. [Suspect]
     Active Substance: MORPHINE SULFATE
     Dosage: UNK
  10. DOXYCYCLINE HYCLATE. [Suspect]
     Active Substance: DOXYCYCLINE HYCLATE
     Dosage: UNK
  11. TRABECTEDIN [Suspect]
     Active Substance: TRABECTEDIN
     Dosage: UNK
  12. ELIQUIS [Suspect]
     Active Substance: APIXABAN
     Dosage: UNK
  13. FLUCONAZOLE. [Suspect]
     Active Substance: FLUCONAZOLE
     Dosage: UNK

REACTIONS (1)
  - Drug hypersensitivity [Unknown]
